FAERS Safety Report 7471214-1 (Version None)
Quarter: 2011Q2

REPORT INFORMATION
  Report Type: 
  Country: None (occurrence: None)
  Receive Date: 20110510
  Receipt Date: 20110505
  Transmission Date: 20111010
  Serious: Yes (Death)
  Sender: FDA-Public Use
  Company Number: VE-PFIZER INC-2010133821

PATIENT

DRUGS (1)
  1. GENOTROPIN [Suspect]

REACTIONS (1)
  - DEATH [None]
